FAERS Safety Report 12343443 (Version 7)
Quarter: 2019Q3

REPORT INFORMATION
  Report Type: Spontaneous
  Country: US (occurrence: US)
  Receive Date: 20160506
  Receipt Date: 20190918
  Transmission Date: 20191004
  Serious: No
  Sender: FDA-Public Use
  Company Number: US-PFIZER INC-2016203730

PATIENT
  Age: 72 Year
  Sex: Female

DRUGS (4)
  1. FLECTOR [Suspect]
     Active Substance: DICLOFENAC EPOLAMINE
     Indication: BACK PAIN
  2. FLECTOR [Suspect]
     Active Substance: DICLOFENAC EPOLAMINE
     Indication: OSTEOARTHRITIS
     Dosage: 1 DF, 2X/DAY (1 PATCH, EVERY 12 HOURS)
     Route: 062
     Dates: start: 2010
  3. BIOFREEZE [MENTHOL] [Concomitant]
     Dosage: UNK
  4. FLECTOR [Suspect]
     Active Substance: DICLOFENAC EPOLAMINE
     Indication: ARTHRITIS

REACTIONS (5)
  - Drug ineffective [Unknown]
  - Intentional overdose [Unknown]
  - Influenza [Unknown]
  - Malaise [Unknown]
  - Pyrexia [Unknown]
